FAERS Safety Report 6274466-9 (Version None)
Quarter: 2009Q3

REPORT INFORMATION
  Report Type: 
  Country: None (occurrence: None)
  Receive Date: 20090720
  Receipt Date: 20090708
  Transmission Date: 20100115
  Serious: Yes (Other)
  Sender: FDA-Public Use
  Company Number: PHEH2009US07317

PATIENT
  Sex: Female

DRUGS (3)
  1. EXELON [Suspect]
     Dosage: 9.5 UNK, QD
     Route: 062
  2. NAMENDA [Concomitant]
  3. NORVASC [Concomitant]

REACTIONS (1)
  - HEPATIC ENZYME INCREASED [None]
